FAERS Safety Report 11796702 (Version 3)
Quarter: 2015Q4

REPORT INFORMATION
  Report Type: Spontaneous
  Country: AT (occurrence: AT)
  Receive Date: 20151203
  Receipt Date: 20151204
  Transmission Date: 20160305
  Serious: Yes (Hospitalization)
  Sender: FDA-Public Use
  Company Number: AT-BIOGENIDEC-2015BI158383

PATIENT
  Sex: Male

DRUGS (2)
  1. TYSABRI [Suspect]
     Active Substance: NATALIZUMAB
     Indication: MULTIPLE SCLEROSIS
     Route: 042
     Dates: start: 2007, end: 201110
  2. FINGOLIMOD [Concomitant]
     Active Substance: FINGOLIMOD
     Dates: start: 201112, end: 201203

REACTIONS (3)
  - Disease progression [Unknown]
  - Progressive multifocal leukoencephalopathy [Unknown]
  - Neurological symptom [Unknown]

NARRATIVE: CASE EVENT DATE: 201110
